FAERS Safety Report 6737002-6 (Version None)
Quarter: 2010Q2

REPORT INFORMATION
  Report Type: 
  Country: None (occurrence: None)
  Receive Date: 20100523
  Receipt Date: 20100301
  Transmission Date: 20101027
  Serious: No
  Sender: FDA-Public Use
  Company Number: US-ALLERGAN-1002639US

PATIENT
  Sex: Female

DRUGS (2)
  1. COMBIGAN [Suspect]
     Indication: GLAUCOMA
     Dosage: 1 GTT, BID
     Dates: start: 20080101
  2. XALATAN [Suspect]
     Dosage: UNK
     Dates: start: 20080101

REACTIONS (3)
  - EYE DISCHARGE [None]
  - EYE PRURITUS [None]
  - HYPERSENSITIVITY [None]
